FAERS Safety Report 5158348-1 (Version None)
Quarter: 2006Q4

REPORT INFORMATION
  Report Type: 
  Country: None (occurrence: None)
  Receive Date: 20061121
  Receipt Date: 20061121
  Transmission Date: 20070319
  Serious: Yes (Death)
  Sender: FDA-Public Use
  Company Number: None

PATIENT
  Age: 60 Year
  Sex: Male
  Weight: 88 kg

DRUGS (11)
  1. ENOXAPARIN SODIUM [Suspect]
     Indication: ATRIAL FIBRILLATION
     Dosage: 80MG DAILY SQ
     Route: 058
     Dates: start: 20060526, end: 20060528
  2. ENOXAPARIN SODIUM [Suspect]
     Indication: ATRIAL FIBRILLATION
     Dosage: 80MG/0.8ML Q12H X 2 DOSES SQ
     Route: 058
     Dates: start: 20060601, end: 20060602
  3. TORSEMIDE [Concomitant]
  4. ISMO [Concomitant]
  5. SPIRONOLACTONE [Concomitant]
  6. POTASSIUM CHLORIDE [Concomitant]
  7. DIGOXIN [Concomitant]
  8. HYPDRALAZINE [Concomitant]
  9. MULTI-VITAMIN [Concomitant]
  10. FOLATE [Concomitant]
  11. FERROUS SULFATE TAB [Concomitant]

REACTIONS (6)
  - CARDIAC FAILURE [None]
  - CHRONIC HEPATIC FAILURE [None]
  - GENERAL PHYSICAL HEALTH DETERIORATION [None]
  - HYPOTENSION [None]
  - POST PROCEDURAL HAEMORRHAGE [None]
  - RETROPERITONEAL HAEMORRHAGE [None]
